FAERS Safety Report 13162573 (Version 2)
Quarter: 2017Q1

REPORT INFORMATION
  Report Type: Report from Study
  Country: KR (occurrence: KR)
  Receive Date: 20170130
  Receipt Date: 20170209
  Transmission Date: 20170428
  Serious: Yes (Hospitalization)
  Sender: FDA-Public Use
  Company Number: KR-VIIV HEALTHCARE LIMITED-KR2017GSK009512

PATIENT
  Age: 70 Year
  Sex: Female
  Weight: 43 kg

DRUGS (12)
  1. KALIMATE POWDER [Concomitant]
     Indication: HYPERKALAEMIA
     Dosage: 5 G, TID
     Route: 048
     Dates: start: 20160314, end: 20160520
  2. ALSOBEN [Concomitant]
     Indication: PROPHYLAXIS
     Dosage: 200 MG, QD
     Route: 048
     Dates: start: 20160315, end: 20160524
  3. REYATAZ [Concomitant]
     Active Substance: ATAZANAVIR SULFATE
     Indication: HIV INFECTION
     Dosage: 400 MG, 1D
     Dates: start: 20090304
  4. BEARSE [Concomitant]
     Indication: GASTROINTESTINAL DISORDER
     Dosage: UNK, QD
     Route: 048
     Dates: start: 20160519, end: 20160519
  5. ATIVAN [Concomitant]
     Active Substance: LORAZEPAM
     Indication: DEPRESSION
     Dosage: 0.5 MG, QD
     Route: 048
     Dates: start: 20160518
  6. LEXAPRO [Concomitant]
     Active Substance: ESCITALOPRAM OXALATE
     Indication: DEPRESSION
     Dosage: 10 MG, QD
     Route: 048
     Dates: start: 20160316
  7. NEW HYALUNI OPHTHALMIC SOLUTION [Concomitant]
     Dosage: 1 DF, PRN
     Route: 047
     Dates: start: 20160314
  8. CURELEN OPHTHALMIC SOLUTION [Concomitant]
     Dosage: 1 DF, PRN
     Route: 047
     Dates: start: 20160314
  9. KEROMIN [Concomitant]
  10. ABACAVIR SULFATE + LAMIVUDINE [Suspect]
     Active Substance: ABACAVIR SULFATE\LAMIVUDINE
     Indication: HIV INFECTION
     Dosage: UNK, 1D
     Route: 048
     Dates: start: 20120229
  11. XANAX [Concomitant]
     Active Substance: ALPRAZOLAM
     Indication: DEPRESSION
     Dosage: UNK, QD
     Route: 048
     Dates: start: 20160316, end: 20160427
  12. BONVIVA [Concomitant]
     Active Substance: IBANDRONATE SODIUM
     Indication: OSTEOPOROSIS
     Dosage: 150 MG, QD
     Route: 048
     Dates: start: 20160326, end: 20160425

REACTIONS (1)
  - Fractured sacrum [Recovered/Resolved with Sequelae]

NARRATIVE: CASE EVENT DATE: 201602
